FAERS Safety Report 8460292-9 (Version None)
Quarter: 2012Q2

REPORT INFORMATION
  Report Type: 
  Country: None (occurrence: None)
  Receive Date: 20120622
  Receipt Date: 20120612
  Transmission Date: 20120825
  Serious: Yes (Hospitalization)
  Sender: FDA-Public Use
  Company Number: US-ACTELION-A-US2012-62616

PATIENT

DRUGS (4)
  1. REMODULIN [Suspect]
  2. TRACLEER [Suspect]
     Indication: PULMONARY ARTERIAL HYPERTENSION
     Dosage: UNK
     Route: 048
     Dates: start: 20070816
  3. COUMADIN [Concomitant]
  4. REVATIO [Concomitant]

REACTIONS (5)
  - CATHETER SITE ERYTHEMA [None]
  - CATHETER SITE SWELLING [None]
  - CATHETER SITE PAIN [None]
  - CATHETER SITE DISCHARGE [None]
  - CATHETER SITE INFECTION [None]
